FAERS Safety Report 12971119 (Version 2)
Quarter: 2016Q4

REPORT INFORMATION
  Report Type: Spontaneous
  Country: US (occurrence: US)
  Receive Date: 20161123
  Receipt Date: 20161128
  Transmission Date: 20170207
  Serious: No
  Sender: FDA-Public Use
  Company Number: US-JAZZ-2016-US-019221

PATIENT
  Age: 16 Year
  Sex: Female

DRUGS (11)
  1. XYREM [Suspect]
     Active Substance: SODIUM OXYBATE
     Indication: NARCOLEPSY
     Dosage: 2.25 G, BID
     Route: 048
     Dates: start: 201609
  2. FERROUS SULFATE. [Concomitant]
     Active Substance: FERROUS SULFATE
  3. FOLIC ACID. [Concomitant]
     Active Substance: FOLIC ACID
  4. XYREM [Suspect]
     Active Substance: SODIUM OXYBATE
     Indication: CATAPLEXY
  5. NAPROSYN [Concomitant]
     Active Substance: NAPROXEN
  6. TEGRETOL [Concomitant]
     Active Substance: CARBAMAZEPINE
  7. MECLIZINE [Concomitant]
     Active Substance: MECLIZINE HYDROCHLORIDE
  8. MULTIVITAMINS                      /00116001/ [Concomitant]
  9. FOCALIN [Concomitant]
     Active Substance: DEXMETHYLPHENIDATE HYDROCHLORIDE
  10. MOBIC [Concomitant]
     Active Substance: MELOXICAM
  11. NORVASC [Concomitant]
     Active Substance: AMLODIPINE BESYLATE

REACTIONS (1)
  - Joint injury [Recovering/Resolving]

NARRATIVE: CASE EVENT DATE: 201609
